FAERS Safety Report 8273902-6 (Version None)
Quarter: 2012Q2

REPORT INFORMATION
  Report Type: 
  Country: None (occurrence: None)
  Receive Date: 20120406
  Receipt Date: 20120406
  Transmission Date: 20120825
  Serious: No
  Sender: FDA-Public Use
  Company Number: None

PATIENT
  Sex: Female
  Weight: 70.7611 kg

DRUGS (1)
  1. LISINOPRIL AND HYDROCHLOROTHIAZIDE [Suspect]
     Indication: HYPERTENSION
     Dosage: 10LMG - 12MG ONCE A DAY
     Dates: start: 20110701

REACTIONS (9)
  - FATIGUE [None]
  - HYPOAESTHESIA [None]
  - NAUSEA [None]
  - THIRST [None]
  - COUGH [None]
  - ARTHRALGIA [None]
  - CHROMATURIA [None]
  - PRURITUS [None]
  - DYSPHAGIA [None]
